FAERS Safety Report 17970918 (Version 1)
Quarter: 2020Q3

REPORT INFORMATION
  Report Type: Spontaneous
  Country: ES (occurrence: ES)
  Receive Date: 20200701
  Receipt Date: 20200701
  Transmission Date: 20201103
  Serious: Yes (Hospitalization)
  Sender: FDA-Public Use
  Company Number: NVSC2020ES177786

PATIENT
  Age: 43 Year
  Sex: Male

DRUGS (1)
  1. HYDROXYCHLOROQUINE SULFATE. [Suspect]
     Active Substance: HYDROXYCHLOROQUINE SULFATE
     Indication: COVID-19
     Dosage: 400 MG, QD (DIA)
     Route: 048
     Dates: start: 20200316, end: 20200325

REACTIONS (2)
  - Aggression [Not Recovered/Not Resolved]
  - Behaviour disorder [Not Recovered/Not Resolved]

NARRATIVE: CASE EVENT DATE: 20200410
